FAERS Safety Report 5379170-7 (Version None)
Quarter: 2007Q3

REPORT INFORMATION
  Report Type: 
  Country: None (occurrence: None)
  Receive Date: 20070705
  Receipt Date: 20070626
  Transmission Date: 20080115
  Serious: Yes (Death, Other)
  Sender: FDA-Public Use
  Company Number: JP-BRISTOL-MYERS SQUIBB COMPANY-13813092

PATIENT
  Age: 50 Year
  Sex: Male

DRUGS (9)
  1. IFOMIDE [Suspect]
     Indication: TESTICULAR CANCER METASTATIC
     Route: 042
     Dates: start: 20070409, end: 20070409
  2. AQUPLA [Suspect]
     Indication: TESTICULAR CANCER METASTATIC
     Route: 042
     Dates: start: 20070502, end: 20070502
  3. BLEOMYCIN [Concomitant]
     Dates: start: 20060420
  4. ETOPOSIDE [Concomitant]
     Dates: start: 20060803
  5. CISPLATIN [Concomitant]
     Dates: start: 20060803
  6. PACLITAXEL [Concomitant]
     Dates: start: 20061215, end: 20070404
  7. IRINOTECAN HCL [Concomitant]
     Dates: start: 20070502, end: 20070503
  8. CARBENIN [Concomitant]
     Dates: start: 20070503
  9. EXACIN [Concomitant]
     Dates: start: 20070503

REACTIONS (3)
  - ACUTE RESPIRATORY DISTRESS SYNDROME [None]
  - BONE MARROW FAILURE [None]
  - PNEUMONIA [None]
